FAERS Safety Report 16359752 (Version 2)
Quarter: 2019Q2

REPORT INFORMATION
  Report Type: Report from Study
  Country: CZ (occurrence: CZ)
  Receive Date: 20190528
  Receipt Date: 20190626
  Transmission Date: 20190711
  Serious: Yes (Death, Life-Threatening, Hospitalization)
  Sender: FDA-Public Use
  Company Number: CZ-CELLTRION INC.-2019CZ021218

PATIENT

DRUGS (14)
  1. REMSIMA [Suspect]
     Active Substance: INFLIXIMAB
     Dosage: 400 MG (WT: 70)
     Route: 042
     Dates: start: 20170926, end: 20170926
  2. REMSIMA [Suspect]
     Active Substance: INFLIXIMAB
     Dosage: 400 MG (WT: 68)
     Route: 042
     Dates: start: 20180214, end: 20180214
  3. REMSIMA [Suspect]
     Active Substance: INFLIXIMAB
     Dosage: 400 MG (WT: 70)
     Route: 042
     Dates: start: 20180924, end: 20180924
  4. REMSIMA [Suspect]
     Active Substance: INFLIXIMAB
     Dosage: 400 MG (WT: 64)
     Route: 042
     Dates: start: 20190319, end: 20190319
  5. REMSIMA [Suspect]
     Active Substance: INFLIXIMAB
     Indication: CROHN^S DISEASE
     Dosage: 400 MG (WT: 70)
     Route: 042
     Dates: start: 20170913, end: 20170913
  6. REMSIMA [Suspect]
     Active Substance: INFLIXIMAB
     Dosage: 400 MG (WT: 68)
     Route: 042
     Dates: start: 20171220, end: 20171220
  7. REMSIMA [Suspect]
     Active Substance: INFLIXIMAB
     Dosage: 400 MG (WT: 66)
     Route: 042
     Dates: start: 20190116, end: 20190116
  8. IMURAN [Concomitant]
     Active Substance: AZATHIOPRINE
     Indication: CROHN^S DISEASE
     Dosage: 75 MG, BID
     Route: 048
     Dates: start: 20170426
  9. REMSIMA [Suspect]
     Active Substance: INFLIXIMAB
     Dosage: 400 MG (WT: 70)
     Route: 042
     Dates: start: 20171023, end: 20171023
  10. REMSIMA [Suspect]
     Active Substance: INFLIXIMAB
     Dosage: 400 MG (WT: 68)
     Route: 042
     Dates: start: 20181119, end: 20181119
  11. PENTASA [Concomitant]
     Active Substance: MESALAMINE
     Indication: CROHN^S DISEASE
     Dosage: 2 G, BID
     Route: 048
     Dates: start: 2008
  12. REMSIMA [Suspect]
     Active Substance: INFLIXIMAB
     Dosage: 400 MG (WT: 68)
     Route: 042
     Dates: start: 20180411, end: 20180411
  13. REMSIMA [Suspect]
     Active Substance: INFLIXIMAB
     Dosage: 400 MG (WT: 70)
     Route: 042
     Dates: start: 20180604, end: 20180604
  14. REMSIMA [Suspect]
     Active Substance: INFLIXIMAB
     Dosage: 400 MG (WT: 70)
     Route: 042
     Dates: start: 20180730, end: 20180730

REACTIONS (1)
  - Hepatitis alcoholic [Fatal]

NARRATIVE: CASE EVENT DATE: 20190501
